FAERS Safety Report 25331258 (Version 3)
Quarter: 2025Q2

REPORT INFORMATION
  Report Type: Spontaneous
  Country: TW (occurrence: TW)
  Receive Date: 20250519
  Receipt Date: 20250527
  Transmission Date: 20250716
  Serious: No
  Sender: PFIZER
  Company Number: TW-PFIZER INC-PV202500059010

PATIENT
  Age: 67 Year
  Sex: Male
  Weight: 36.5 kg

DRUGS (15)
  1. VORICONAZOLE [Suspect]
     Active Substance: VORICONAZOLE
     Indication: Fungal infection
     Dosage: 200 MG, EVERY 12 HOURS
     Route: 042
     Dates: start: 20190531, end: 20190531
  2. VORICONAZOLE [Suspect]
     Active Substance: VORICONAZOLE
     Dosage: 150 MG, EVERY 12 HOURS
     Route: 042
     Dates: start: 20190601, end: 20190616
  3. VORICONAZOLE [Suspect]
     Active Substance: VORICONAZOLE
     Indication: Fungal infection
     Dosage: 100 MG, EVERY 12 HOURS
     Route: 048
     Dates: start: 20190617, end: 20191114
  4. VORICONAZOLE [Suspect]
     Active Substance: VORICONAZOLE
     Dosage: 50 MG TABLET, EVERY 12 HOURS
     Route: 048
     Dates: start: 20191115, end: 20210415
  5. ERAXIS [Suspect]
     Active Substance: ANIDULAFUNGIN
     Indication: Fungal infection
     Dosage: 100 MG, 1X/DAY
     Route: 041
     Dates: start: 20190515, end: 20190515
  6. ERAXIS [Suspect]
     Active Substance: ANIDULAFUNGIN
     Route: 041
     Dates: start: 20190515, end: 20190530
  7. AMPHOTERICIN B [Concomitant]
     Active Substance: AMPHOTERICIN B
     Indication: Antifungal treatment
     Dosage: 10 MG, EVERY 12 HOURS
     Route: 055
  8. TACROLIMUS [Concomitant]
     Active Substance: TACROLIMUS
     Indication: Immunosuppressant drug therapy
  9. MYCOPHENOLATE SODIUM [Concomitant]
     Active Substance: MYCOPHENOLATE SODIUM
     Indication: Immunosuppressant drug therapy
  10. METHYLPREDNISOLONE [Concomitant]
     Active Substance: METHYLPREDNISOLONE
     Indication: Immunosuppressant drug therapy
  11. PREDNISOLONE [Concomitant]
     Active Substance: PREDNISOLONE
     Indication: Immunosuppressant drug therapy
  12. MEROPENEM [Concomitant]
     Active Substance: MEROPENEM
     Indication: Antibiotic therapy
  13. TEICOPLANIN [Concomitant]
     Active Substance: TEICOPLANIN
     Indication: Antibiotic therapy
  14. COTRIMOXAZOLE [Concomitant]
     Active Substance: SULFAMETHOXAZOLE\TRIMETHOPRIM
     Indication: Antibiotic therapy
  15. NYSTATIN [Concomitant]
     Active Substance: NYSTATIN
     Route: 048

REACTIONS (2)
  - Liver disorder [Unknown]
  - Alanine aminotransferase increased [Recovered/Resolved]

NARRATIVE: CASE EVENT DATE: 20210415
